FAERS Safety Report 26047297 (Version 4)
Quarter: 2025Q4

REPORT INFORMATION
  Report Type: Spontaneous
  Country: US (occurrence: US)
  Receive Date: 20251114
  Receipt Date: 20251222
  Transmission Date: 20260117
  Serious: No
  Sender: PFIZER
  Company Number: US-PFIZER INC-202500221402

PATIENT
  Age: 17 Year
  Sex: Male

DRUGS (2)
  1. GENOTROPIN [Suspect]
     Active Substance: SOMATROPIN
     Dosage: 2.0 MG AND 2.2 MG ALTERNATING FOR 2.1MG DAILY INJECTION
     Dates: start: 202504
  2. GENOTROPIN [Suspect]
     Active Substance: SOMATROPIN
     Dosage: 2.0 MG AND 2.2 MG ALTERNATING FOR 2.1MG DAILY INJECTION
     Dates: start: 202504

REACTIONS (2)
  - Drug dose omission by device [Unknown]
  - Device leakage [Unknown]
